FAERS Safety Report 9899367 (Version 2)
Quarter: 2014Q1

REPORT INFORMATION
  Report Type: Spontaneous
  Country: US (occurrence: US)
  Receive Date: 20140214
  Receipt Date: 20140307
  Transmission Date: 20141002
  Serious: No
  Sender: FDA-Public Use
  Company Number: US-PFIZER INC-2014041789

PATIENT
  Sex: Female

DRUGS (2)
  1. LYRICA [Suspect]
     Dosage: 75 MG, UNK
  2. LYRICA [Suspect]
     Dosage: 50 MG, UNK

REACTIONS (3)
  - Restless legs syndrome [Unknown]
  - Somnolence [Unknown]
  - Insomnia [Unknown]
